FAERS Safety Report 9918457 (Version 1)
Quarter: 2014Q1

REPORT INFORMATION
  Report Type: Spontaneous
  Country: US (occurrence: US)
  Receive Date: 20140224
  Receipt Date: 20140224
  Transmission Date: 20141002
  Serious: Yes (Other)
  Sender: FDA-Public Use
  Company Number: US-BEH-2014040735

PATIENT
  Age: 8 Year
  Sex: Male

DRUGS (1)
  1. SUBCUTANEOUS IMMUNOGLOBULIN [Suspect]
     Indication: ATAXIA TELANGIECTASIA

REACTIONS (5)
  - Central nervous system infection [Recovered/Resolved]
  - Toxoplasmosis [Recovered/Resolved]
  - Dyspnoea [Unknown]
  - Pyrexia [Unknown]
  - Somnolence [Unknown]
